FAERS Safety Report 5010647-X (Version None)
Quarter: 2006Q2

REPORT INFORMATION
  Report Type: 
  Country: None (occurrence: None)
  Receive Date: 20060525
  Receipt Date: 20060517
  Transmission Date: 20061013
  Serious: Yes (Other)
  Sender: FDA-Public Use
  Company Number: GB-JNJFOC-20060304469

PATIENT
  Age: 18 Year
  Sex: Female

DRUGS (4)
  1. DURAGESIC-50 [Suspect]
     Route: 062
  2. DURAGESIC-50 [Suspect]
     Route: 062
  3. DURAGESIC-50 [Suspect]
     Route: 062
  4. DURAGESIC-50 [Suspect]
     Indication: DRUG USE FOR UNKNOWN INDICATION
     Route: 062

REACTIONS (2)
  - DEHYDRATION [None]
  - HEADACHE [None]
